FAERS Safety Report 14722607 (Version 2)
Quarter: 2018Q2

REPORT INFORMATION
  Report Type: Spontaneous
  Country: US (occurrence: US)
  Receive Date: 20180405
  Receipt Date: 20180525
  Transmission Date: 20180711
  Serious: No
  Sender: FDA-Public Use
  Company Number: PHEH2018US012038

PATIENT
  Sex: Female

DRUGS (1)
  1. COSENTYX [Suspect]
     Active Substance: SECUKINUMAB
     Indication: PRODUCT USED FOR UNKNOWN INDICATION
     Dosage: 1 DF, UNK
     Route: 058

REACTIONS (6)
  - Accidental exposure to product [Unknown]
  - Arthralgia [Recovered/Resolved]
  - Ear pain [Unknown]
  - Headache [Unknown]
  - Lymphadenopathy [Unknown]
  - Device issue [Unknown]
